FAERS Safety Report 5235778-0 (Version None)
Quarter: 2007Q1

REPORT INFORMATION
  Report Type: 
  Country: None (occurrence: None)
  Receive Date: 20061208
  Receipt Date: 20060616
  Transmission Date: 20070707
  Serious: Yes (Other)
  Sender: FDA-Public Use
  Company Number: 2006UW12869

PATIENT
  Age: 38 Year
  Sex: Male

DRUGS (2)
  1. CRESTOR [Suspect]
     Dosage: 40 MG PO
     Route: 048
  2. RANEXA [Suspect]
     Dosage: 1000 MG

REACTIONS (3)
  - BLOOD CHOLESTEROL INCREASED [None]
  - DRUG INTERACTION [None]
  - LOW DENSITY LIPOPROTEIN INCREASED [None]
